FAERS Safety Report 6866760-5 (Version None)
Quarter: 2010Q3

REPORT INFORMATION
  Report Type: 
  Country: None (occurrence: None)
  Receive Date: 20100722
  Receipt Date: 20100715
  Transmission Date: 20110219
  Serious: Yes (Other)
  Sender: FDA-Public Use
  Company Number: GB-NAPPMUNDI-GBR-2010-0006804

PATIENT
  Sex: Male

DRUGS (5)
  1. BTDS 20 MG [Suspect]
     Indication: NEURALGIA
     Dosage: 20 MCG, Q1H
     Route: 062
     Dates: start: 20100414
  2. BTDS 20 MG [Suspect]
     Dosage: UNK
     Route: 062
     Dates: end: 20100414
  3. GABAPENTINE [Concomitant]
     Indication: NEURALGIA
     Dosage: 600 MG, UNK
     Route: 065
  4. TRAMADOL HCL [Concomitant]
     Indication: NEURALGIA
     Dosage: UNK
     Route: 065
  5. PARACETAMOL [Concomitant]
     Dosage: UNK
     Route: 065

REACTIONS (8)
  - APPLICATION SITE BLEEDING [None]
  - APPLICATION SITE EROSION [None]
  - APPLICATION SITE PRURITUS [None]
  - DEPRESSION [None]
  - INADEQUATE ANALGESIA [None]
  - MEMORY IMPAIRMENT [None]
  - PRODUCT ADHESION ISSUE [None]
  - SUICIDAL IDEATION [None]
